FAERS Safety Report 16171368 (Version 1)
Quarter: 2019Q2

REPORT INFORMATION
  Report Type: Spontaneous
  Country: US (occurrence: US)
  Receive Date: 20190408
  Receipt Date: 20190408
  Transmission Date: 20190711
  Serious: No
  Sender: FDA-Public Use
  Company Number: US-TARO-2018TAR00633

PATIENT

DRUGS (1)
  1. PHENYTOIN ORAL SUSPENSION USP 125 MG/5ML [Suspect]
     Active Substance: PHENYTOIN

REACTIONS (1)
  - Hypersensitivity [Unknown]
